FAERS Safety Report 24195276 (Version 1)
Quarter: 2024Q3

REPORT INFORMATION
  Report Type: Spontaneous
  Country: US (occurrence: None)
  Receive Date: 20240809
  Receipt Date: 20240809
  Transmission Date: 20241017
  Serious: No
  Sender: Public
  Company Number: None

PATIENT
  Age: 46 Year
  Sex: Female

DRUGS (22)
  1. AMBRISENTAN [Suspect]
     Active Substance: AMBRISENTAN
     Indication: Pulmonary arterial hypertension
     Dosage: FREQUENCY : DAILY;?
     Route: 048
  2. DESONIDE [Concomitant]
     Active Substance: DESONIDE
  3. AYR SALINE NASAL [Concomitant]
  4. TADALAFIL [Concomitant]
     Active Substance: TADALAFIL
  5. TRELEGY ELLIPTA [Concomitant]
     Active Substance: FLUTICASONE FUROATE\UMECLIDINIUM BROMIDE\VILANTEROL TRIFENATATE
  6. AMITRIPTYLINE HYDROCHLORIDE [Concomitant]
     Active Substance: AMITRIPTYLINE HYDROCHLORIDE
  7. POTASSIUM [Concomitant]
     Active Substance: POTASSIUM
  8. SUBOXONE [Concomitant]
     Active Substance: BUPRENORPHINE HYDROCHLORIDE\NALOXONE HYDROCHLORIDE
  9. GABAPENTIN [Concomitant]
     Active Substance: GABAPENTIN
  10. UPTRAVI [Concomitant]
     Active Substance: SELEXIPAG
  11. VARENICLINE TARTRATE [Concomitant]
     Active Substance: VARENICLINE TARTRATE
  12. MIRENA [Concomitant]
     Active Substance: LEVONORGESTREL
  13. PROVENTIL [Concomitant]
     Active Substance: ALBUTEROL
  14. MIRALAX [Concomitant]
     Active Substance: POLYETHYLENE GLYCOL 3350
  15. FAMOTIDINE [Concomitant]
     Active Substance: FAMOTIDINE
  16. TUMS E-X 750 [Concomitant]
  17. MOVANTIK [Concomitant]
     Active Substance: NALOXEGOL OXALATE
  18. TORSEMIDE [Concomitant]
     Active Substance: TORSEMIDE
  19. ONDANSETRON HYDROCHLORIDE [Concomitant]
     Active Substance: ONDANSETRON HYDROCHLORIDE
  20. PROMETHAZINE HCL |LOVENOX |DRYSOL [Concomitant]
  21. ACETAMINOPHEN |EQL OMEPRAZOLE |WARFARIN SODIUM [Concomitant]
  22. DICLOFENAC SODIUM |ALBUTEROL SULFATE |MUCINEX [Concomitant]

REACTIONS (1)
  - COVID-19 [None]

NARRATIVE: CASE EVENT DATE: 20240804
